FAERS Safety Report 6217474-6 (Version None)
Quarter: 2009Q2

REPORT INFORMATION
  Report Type: 
  Country: None (occurrence: None)
  Receive Date: 20090608
  Receipt Date: 20081211
  Transmission Date: 20091009
  Serious: No
  Sender: FDA-Public Use
  Company Number: A0756044A

PATIENT
  Age: 24 Year
  Sex: Female

DRUGS (2)
  1. BUPROPION HCL [Suspect]
     Indication: DEPRESSION
     Dosage: 450MGD PER DAY
     Route: 048
  2. WELLBUTRIN [Concomitant]

REACTIONS (1)
  - DRUG INEFFECTIVE [None]
